FAERS Safety Report 25732036 (Version 1)
Quarter: 2025Q3

REPORT INFORMATION
  Report Type: Spontaneous
  Country: US (occurrence: None)
  Receive Date: 20250827
  Receipt Date: 20250827
  Transmission Date: 20251020
  Serious: No
  Sender: FDA-CTU
  Company Number: None

PATIENT
  Age: 69 Year
  Sex: Female
  Weight: 49.5 kg

DRUGS (4)
  1. RETATRUTIDE [Suspect]
     Active Substance: RETATRUTIDE
     Indication: Weight decreased
     Route: 058
     Dates: start: 20250720, end: 20250803
  2. ZOLOFT [Concomitant]
     Active Substance: SERTRALINE HYDROCHLORIDE
  3. VITAMIN D NOS [Concomitant]
     Active Substance: CHOLECALCIFEROL\ERGOCALCIFEROL
  4. IRON [Concomitant]
     Active Substance: IRON

REACTIONS (8)
  - Injection site pain [None]
  - Muscle spasms [None]
  - Muscle atrophy [None]
  - Fatigue [None]
  - Sensitive skin [None]
  - Incorrect dose administered [None]
  - Product prescribing error [None]
  - Heart rate increased [None]

NARRATIVE: CASE EVENT DATE: 20250803
